FAERS Safety Report 5401748-2 (Version None)
Quarter: 2007Q3

REPORT INFORMATION
  Report Type: 
  Country: None (occurrence: None)
  Receive Date: 20070731
  Receipt Date: 20070719
  Transmission Date: 20080115
  Serious: Yes (Other)
  Sender: FDA-Public Use
  Company Number: US-PFIZER INC-2007060756

PATIENT
  Sex: Female

DRUGS (1)
  1. DILANTIN KAPSEAL [Suspect]

REACTIONS (4)
  - FATIGUE [None]
  - INTESTINAL FUNCTIONAL DISORDER [None]
  - MALAISE [None]
  - WEIGHT DECREASED [None]
